FAERS Safety Report 8120768-0 (Version None)
Quarter: 2012Q1

REPORT INFORMATION
  Report Type: 
  Country: None (occurrence: None)
  Receive Date: 20120207
  Receipt Date: 20120130
  Transmission Date: 20120608
  Serious: Yes (Other)
  Sender: FDA-Public Use
  Company Number: US-ASTRAZENECA-2011SE54934

PATIENT
  Age: 42 Year
  Sex: Male
  Weight: 72.6 kg

DRUGS (2)
  1. BUSPIRONE HCL [Concomitant]
     Indication: ANXIETY
  2. SEROQUEL [Suspect]
     Indication: BIPOLAR DISORDER
     Route: 048
     Dates: start: 20110201

REACTIONS (5)
  - VOMITING [None]
  - CONVULSION [None]
  - MALAISE [None]
  - DRUG DOSE OMISSION [None]
  - TREMOR [None]
